FAERS Safety Report 21949178 (Version 1)
Quarter: 2023Q1

REPORT INFORMATION
  Report Type: Report from Study
  Country: BE (occurrence: BE)
  Receive Date: 20230203
  Receipt Date: 20230203
  Transmission Date: 20230418
  Serious: Yes (Death)
  Sender: FDA-Public Use
  Company Number: BE-ABBVIE-4293393

PATIENT
  Sex: Female

DRUGS (8)
  1. CARBIDOPA\LEVODOPA [Suspect]
     Active Substance: CARBIDOPA\LEVODOPA
     Indication: Parkinson^s disease
     Dosage: MD: 4.5 ML, CD: 1.6 ML/HR DURING 16 HOURS, ED: 1.2 ML
     Route: 050
     Dates: start: 20221223, end: 20221227
  2. CARBIDOPA\LEVODOPA [Suspect]
     Active Substance: CARBIDOPA\LEVODOPA
     Route: 050
     Dates: start: 20090330
  3. CARBIDOPA\LEVODOPA [Suspect]
     Active Substance: CARBIDOPA\LEVODOPA
     Dosage: MD: 1.5 ML, CD: 1.6 ML/HR DURING 16 HOURS, ED: 1.2 ML
     Route: 050
     Dates: start: 20221227
  4. METOPROLOL [Concomitant]
     Active Substance: METOPROLOL
     Indication: Product used for unknown indication
     Dosage: 1/4
  5. Stalevo 100 mg [Concomitant]
     Indication: Product used for unknown indication
     Dosage: 3 TIMES
  6. Temesta [Concomitant]
     Indication: Product used for unknown indication
     Dosage: IN THE EVENING
  7. AZILECT [Concomitant]
     Active Substance: RASAGILINE MESYLATE
     Indication: Product used for unknown indication
     Dosage: ONCE
  8. PRAMIPEXOLE [Concomitant]
     Active Substance: PRAMIPEXOLE
     Indication: Product used for unknown indication
     Dosage: THREE TIMES

REACTIONS (1)
  - Death [Fatal]
